FAERS Safety Report 4683540-X (Version None)
Quarter: 2005Q2

REPORT INFORMATION
  Report Type: 
  Country: None (occurrence: None)
  Receive Date: 20050602
  Receipt Date: 20050414
  Transmission Date: 20051028
  Serious: Yes (Hospitalization)
  Sender: FDA-Public Use
  Company Number: USA050392569

PATIENT
  Age: 79 Year
  Sex: Female
  Weight: 71 kg

DRUGS (7)
  1. CYMBALTA [Suspect]
     Indication: NEUROPATHIC PAIN
     Dosage: 30 MG
     Dates: start: 20050217, end: 20050217
  2. NEURONTIN(GABAPENITIN PFIZER) [Concomitant]
  3. IMDUR [Concomitant]
  4. TRAMADOL HCL [Concomitant]
  5. EFFEXOR [Concomitant]
  6. ZETIA [Concomitant]
  7. PREVACID [Concomitant]

REACTIONS (2)
  - NAUSEA [None]
  - VOMITING [None]
